FAERS Safety Report 17255749 (Version 1)
Quarter: 2020Q1

REPORT INFORMATION
  Report Type: Spontaneous
  Country: GB (occurrence: GB)
  Receive Date: 20200110
  Receipt Date: 20200110
  Transmission Date: 20200409
  Serious: Yes (Hospitalization)
  Sender: FDA-Public Use
  Company Number: GB-TEVA-2020-GB-1165659

PATIENT
  Age: 95 Year
  Sex: Female

DRUGS (10)
  1. MACROGOL [Concomitant]
     Active Substance: POLYETHYLENE GLYCOLS
     Dosage: 3 DF SACHET
     Route: 048
  2. TERBUTALINE [Concomitant]
     Active Substance: TERBUTALINE
     Dosage: 500MCG/DOSE 1 OR 2 PUFFS AS NECESSARY
     Route: 055
  3. SODIUM CITRATE. [Concomitant]
     Active Substance: SODIUM CITRATE
     Dosage: 5 ML FOR ENEMA
     Route: 054
  4. LEVOTHYROXINE. [Concomitant]
     Active Substance: LEVOTHYROXINE
     Dosage: 75 MCG IN MORNING
     Route: 048
  5. PARACETAMOL [Concomitant]
     Active Substance: ACETAMINOPHEN
     Dosage: 3 G
     Route: 048
  6. APIXABAN [Concomitant]
     Active Substance: APIXABAN
     Dosage: 5 MG IN MORNING AND AT NIGHT
     Route: 048
  7. TRAMADOL. [Suspect]
     Active Substance: TRAMADOL
     Indication: BACK PAIN
     Dosage: 50MG - 100MG 4 TIMES A DAY
     Route: 048
  8. GAVISCON ADVANCE [Concomitant]
     Active Substance: POTASSIUM BICARBONATE\SODIUM ALGINATE
     Dosage: 5 ML UP TO 4 TIMES A DAY
     Route: 048
  9. BISOPROLOL [Concomitant]
     Active Substance: BISOPROLOL
     Dosage: 2.5 MG IN MORNING
     Route: 048
  10. CASSIA [Concomitant]
     Dosage: 15 MG AT NIGHT
     Route: 048

REACTIONS (4)
  - Decreased activity [Unknown]
  - Somnolence [Unknown]
  - Delirium [Unknown]
  - Constipation [Recovered/Resolved]

NARRATIVE: CASE EVENT DATE: 20191109
